FAERS Safety Report 18397155 (Version 1)
Quarter: 2020Q4

REPORT INFORMATION
  Report Type: Spontaneous
  Country: US (occurrence: US)
  Receive Date: 20201016
  Receipt Date: 20201016
  Transmission Date: 20210114
  Serious: Yes (Hospitalization)
  Sender: FDA-Public Use
  Company Number: None

PATIENT
  Age: 5 Year
  Sex: Male
  Weight: 17.3 kg

DRUGS (13)
  1. ETOPOSIDE (VP-16) [Suspect]
     Active Substance: ETOPOSIDE
     Dates: end: 20200531
  2. GLEEVEC [Suspect]
     Active Substance: IMATINIB MESYLATE
     Dates: end: 20200716
  3. ONCASPAR [Suspect]
     Active Substance: PEGASPARGASE
     Dates: end: 20200624
  4. MERCAPTOPURINE. [Suspect]
     Active Substance: MERCAPTOPURINE
     Dates: end: 20200309
  5. METHOTREXATE. [Suspect]
     Active Substance: METHOTREXATE
     Dates: end: 20200617
  6. VINCRISTINE SULFATE. [Suspect]
     Active Substance: VINCRISTINE SULFATE
     Dates: end: 20200708
  7. CYCLOPHOSPHAMIDE. [Suspect]
     Active Substance: CYCLOPHOSPHAMIDE
     Dates: end: 20200413
  8. LEUCOVORIN CALCIUM. [Suspect]
     Active Substance: LEUCOVORIN CALCIUM
     Dates: end: 20200509
  9. CYTARABINE. [Suspect]
     Active Substance: CYTARABINE
     Dates: end: 20200528
  10. DEXAMETHASONE. [Suspect]
     Active Substance: DEXAMETHASONE
     Dates: end: 20200707
  11. ZINECARD [Suspect]
     Active Substance: DEXRAZOXANE HYDROCHLORIDE
     Dates: end: 20200708
  12. DOXORUBICIN HYDROCHLORIDE. [Suspect]
     Active Substance: DOXORUBICIN HYDROCHLORIDE
     Dates: end: 20200708
  13. PREDNISONE. [Suspect]
     Active Substance: PREDNISONE
     Dates: end: 20200122

REACTIONS (15)
  - Enterocolitis [None]
  - Sinus tachycardia [None]
  - Atelectasis [None]
  - Toxicity to various agents [None]
  - Mucosal inflammation [None]
  - Tachypnoea [None]
  - Abdominal pain [None]
  - Nausea [None]
  - Pleural effusion [None]
  - Ascites [None]
  - Neutropenia [None]
  - Hyperphagia [None]
  - Hypertension [None]
  - Pyrexia [None]
  - Capillary leak syndrome [None]

NARRATIVE: CASE EVENT DATE: 20200717
